FAERS Safety Report 9425527 (Version 2)
Quarter: 2013Q3

REPORT INFORMATION
  Report Type: Spontaneous
  Country: CH (occurrence: CH)
  Receive Date: 20130729
  Receipt Date: 20130806
  Transmission Date: 20140515
  Serious: Yes (Other)
  Sender: FDA-Public Use
  Company Number: CH-GILEAD-2013-0080026

PATIENT
  Age: 46 Year
  Sex: Male

DRUGS (3)
  1. TRUVADA [Suspect]
     Indication: HIV INFECTION
     Route: 048
     Dates: start: 200903, end: 20130515
  2. NORVIR [Suspect]
     Indication: HIV INFECTION
     Route: 048
     Dates: start: 200903, end: 20130515
  3. REYATAZ [Suspect]
     Indication: HIV INFECTION
     Dosage: UNK
     Dates: start: 200903, end: 20130523

REACTIONS (3)
  - Myoglobin blood increased [Recovering/Resolving]
  - Blood creatine phosphokinase increased [Recovering/Resolving]
  - Hepatic enzyme increased [Recovering/Resolving]
